FAERS Safety Report 9190589 (Version 2)
Quarter: 2013Q2

REPORT INFORMATION
  Report Type: Spontaneous
  Country: IN (occurrence: IN)
  Receive Date: 20130326
  Receipt Date: 20130530
  Transmission Date: 20140414
  Serious: Yes (Death, Hospitalization)
  Sender: FDA-Public Use
  Company Number: IN-B.I. PHARMACEUTICALS,INC./RIDGEFIELD-2013-BI-07721IG

PATIENT
  Age: 52 Year
  Sex: Male

DRUGS (1)
  1. TRAJENTA [Suspect]
     Indication: TYPE 2 DIABETES MELLITUS

REACTIONS (4)
  - Aortic stenosis [Fatal]
  - Cardiac failure congestive [Fatal]
  - Multi-organ failure [Fatal]
  - Pancreatitis [Unknown]
